FAERS Safety Report 10717331 (Version 1)
Quarter: 2015Q1

REPORT INFORMATION
  Report Type: Spontaneous
  Country: IL (occurrence: IL)
  Receive Date: 20150116
  Receipt Date: 20150116
  Transmission Date: 20150721
  Serious: Yes (Death, Life-Threatening, Hospitalization, Other)
  Sender: FDA-Public Use
  Company Number: IL-AMGEN-ISRSP2015002823

PATIENT
  Age: 55 Year
  Sex: Female

DRUGS (5)
  1. METHOTREXATE [Concomitant]
     Active Substance: METHOTREXATE
     Indication: FELTY^S SYNDROME
     Dosage: 7.5 MG, QWK
  2. HYDROXYCHLOROQUINE [Concomitant]
     Active Substance: HYDROXYCHLOROQUINE
     Indication: RHEUMATOID ARTHRITIS
     Dosage: UNK
  3. NEUPOGEN [Suspect]
     Active Substance: FILGRASTIM
     Indication: FELTY^S SYNDROME
     Dosage: UNK
     Route: 065
  4. PREDNISONE. [Concomitant]
     Active Substance: PREDNISONE
     Indication: RHEUMATOID ARTHRITIS
     Dosage: 60 MG, PER DAY
  5. PIPERACILLIN AND TAZOBACTAM [Concomitant]
     Active Substance: PIPERACILLIN SODIUM\TAZOBACTAM SODIUM
     Indication: PYREXIA
     Dosage: UNK

REACTIONS (25)
  - Abdominal pain [Unknown]
  - Asthenia [Unknown]
  - Granulocytopenia [Unknown]
  - Catheter site pain [Unknown]
  - Staphylococcal infection [Unknown]
  - Bacterial infection [Unknown]
  - Escherichia infection [Unknown]
  - Systemic candida [Unknown]
  - Pallor [Unknown]
  - Blood pressure abnormal [Unknown]
  - Platelet count abnormal [Unknown]
  - Off label use [Unknown]
  - Pyrexia [Unknown]
  - Sepsis [Unknown]
  - Fungal infection [Unknown]
  - Dyspnoea [Unknown]
  - Disease progression [Fatal]
  - Citrobacter test positive [Unknown]
  - Diarrhoea [Unknown]
  - Ascites [Unknown]
  - Splenomegaly [Unknown]
  - Abdominal tenderness [Unknown]
  - Campylobacter test positive [Unknown]
  - Anaemia [Unknown]
  - Oral candidiasis [Unknown]
